FAERS Safety Report 9470292 (Version 1)
Quarter: 2013Q3

REPORT INFORMATION
  Report Type: Spontaneous
  Country: US (occurrence: US)
  Receive Date: 20130822
  Receipt Date: 20130822
  Transmission Date: 20140515
  Serious: No
  Sender: FDA-Public Use
  Company Number: US-SANOFI-AVENTIS-2012SA054517

PATIENT
  Age: 86 Year
  Sex: Female
  Weight: 49.09 kg

DRUGS (6)
  1. MULTAQ [Suspect]
     Indication: ATRIAL FIBRILLATION
     Route: 048
     Dates: start: 20120717, end: 20120719
  2. MULTAQ [Suspect]
     Indication: ATRIAL FIBRILLATION
     Dosage: ^200 MG^ DAILY AND TOLERATED TILL 1600 MG WAS REACHED
     Route: 048
     Dates: start: 20120723, end: 20120730
  3. AMIODARONE [Concomitant]
     Dates: end: 201207
  4. AMIODARONE [Concomitant]
     Dates: start: 201207
  5. AVALIDE [Concomitant]
     Indication: HYPERTENSION
  6. ASPIRIN [Concomitant]
     Indication: ANTIPLATELET THERAPY

REACTIONS (6)
  - Insomnia [Recovered/Resolved]
  - Secretion discharge [Recovered/Resolved]
  - Arrhythmia [Recovered/Resolved]
  - Asthenia [Recovered/Resolved]
  - Pruritus [Recovered/Resolved]
  - Fatigue [Recovered/Resolved]
